FAERS Safety Report 7867536-2 (Version None)
Quarter: 2011Q4

REPORT INFORMATION
  Report Type: 
  Country: None (occurrence: None)
  Receive Date: 20111028
  Receipt Date: 20111022
  Transmission Date: 20120403
  Serious: Yes (Other)
  Sender: FDA-Public Use
  Company Number: PHHY2009BR13207

PATIENT
  Sex: Female

DRUGS (8)
  1. DIOVAN [Suspect]
     Dosage: 320 MG, UNK
  2. ADALAT [Concomitant]
     Dosage: 1 DF, QD
     Dates: start: 20090319
  3. DIOVAN [Suspect]
     Dosage: 80 MG, DAILY
  4. DIOVAN HCT [Suspect]
     Dosage: 1 DF, DAILY
  5. INDAPAMIDE [Suspect]
     Dosage: 1 DF, QD
     Dates: start: 20090319
  6. ATENOLOL/NIFEDIPINE [Suspect]
     Dosage: 10/5 MG
  7. VASTAREL [Concomitant]
     Indication: ISCHAEMIA
     Dosage: ONE TABLET EVERY 12 HOURS
     Dates: start: 20090319
  8. SIMVASTATIN [Concomitant]
     Dosage: 1 DF, QD
     Dates: start: 20090319

REACTIONS (3)
  - BLOOD GLUCOSE INCREASED [None]
  - MYOCARDIAL ISCHAEMIA [None]
  - BLOOD PRESSURE INCREASED [None]
